FAERS Safety Report 4494504-3 (Version None)
Quarter: 2004Q4

REPORT INFORMATION
  Report Type: 
  Country: None (occurrence: None)
  Receive Date: 20041102
  Receipt Date: 20041020
  Transmission Date: 20050328
  Serious: Yes (Hospitalization)
  Sender: FDA-Public Use
  Company Number: 2004239701JP

PATIENT
  Age: 77 Year
  Sex: Male

DRUGS (3)
  1. ESTRACYT(ESTRAMUSTINE PHOSPHATE) CAPSULE [Suspect]
     Indication: PROSTATE CANCER
     Dosage: 560 MG, QD, ORAL
     Route: 048
     Dates: start: 20040814, end: 20040827
  2. MAGNESIUM OXIDE [Concomitant]
  3. SENNOSIDE A+B (SENNOSIDE A+B) [Concomitant]

REACTIONS (1)
  - HYPERKALAEMIA [None]
